FAERS Safety Report 23565674 (Version 1)
Quarter: 2024Q1

REPORT INFORMATION
  Report Type: Spontaneous
  Country: US (occurrence: US)
  Receive Date: 20240226
  Receipt Date: 20240226
  Transmission Date: 20240410
  Serious: No
  Sender: FDA-Public Use
  Company Number: US-PFIZER INC-202400049032

PATIENT
  Age: 41 Year
  Sex: Female

DRUGS (3)
  1. BRAFTOVI [Suspect]
     Active Substance: ENCORAFENIB
     Indication: Malignant melanoma
     Dosage: 75 MILLIGRAM, BY MOUTH, ONCE A DAY
     Route: 048
  2. MEKTOVI [Suspect]
     Active Substance: BINIMETINIB
     Indication: Malignant melanoma
     Dosage: 15 MILLIGRAM, TABLET, BY MOUTH, TWICE A DAY
     Route: 048
  3. TRAMADOL [Concomitant]
     Active Substance: TRAMADOL\TRAMADOL HYDROCHLORIDE
     Dosage: 50MG, TABLET

REACTIONS (2)
  - Fatigue [Unknown]
  - Off label use [Unknown]
